FAERS Safety Report 11128346 (Version 1)
Quarter: 2015Q2

REPORT INFORMATION
  Report Type: Spontaneous
  Country: US (occurrence: None)
  Receive Date: 20150520
  Receipt Date: 20150520
  Transmission Date: 20150821
  Serious: No
  Sender: FDA-Public Use
  Company Number: None

PATIENT
  Age: 44 Year
  Sex: Female

DRUGS (1)
  1. IBRANCE [Suspect]
     Active Substance: PALBOCICLIB
     Indication: BREAST CANCER
     Dosage: 125MG 1 TAB DAILY BY MOUTH
     Route: 048
     Dates: start: 20150507

REACTIONS (2)
  - Fatigue [None]
  - Vomiting [None]

NARRATIVE: CASE EVENT DATE: 20150510
